FAERS Safety Report 6860973-4 (Version None)
Quarter: 2010Q3

REPORT INFORMATION
  Report Type: 
  Country: None (occurrence: None)
  Receive Date: 20100720
  Receipt Date: 20100715
  Transmission Date: 20110219
  Serious: Yes (Death)
  Sender: FDA-Public Use
  Company Number: DE-ABBOTT-10P-062-0656951-00

PATIENT
  Sex: Male
  Weight: 84 kg

DRUGS (1)
  1. ZEMPLAR [Suspect]
     Indication: RENAL FAILURE CHRONIC

REACTIONS (3)
  - CARDIAC FAILURE ACUTE [None]
  - LEUKOPENIA [None]
  - METASTATIC BRONCHIAL CARCINOMA [None]
